FAERS Safety Report 5597327-7 (Version None)
Quarter: 2007Q4

REPORT INFORMATION
  Report Type: 
  Country: None (occurrence: None)
  Receive Date: 20071221
  Receipt Date: 20071113
  Transmission Date: 20080405
  Serious: No
  Sender: FDA-Public Use
  Company Number: SPV1-2007-04907

PATIENT
  Age: 10 Year
  Sex: Female
  Weight: 34 kg

DRUGS (2)
  1. VYVANSE [Suspect]
     Indication: ATTENTION DEFICIT/HYPERACTIVITY DISORDER
     Dosage: 30 MG, 1X/DAY:QD, ORAL, 1/2 30 MG, 1X/DAY:QD, ORAL
     Route: 048
     Dates: start: 20071103, end: 20071109
  2. VYVANSE [Suspect]
     Indication: ATTENTION DEFICIT/HYPERACTIVITY DISORDER
     Dosage: 30 MG, 1X/DAY:QD, ORAL, 1/2 30 MG, 1X/DAY:QD, ORAL
     Route: 048
     Dates: start: 20071110

REACTIONS (5)
  - DECREASED APPETITE [None]
  - ERYTHEMA [None]
  - MIGRAINE [None]
  - VOMITING [None]
  - WRONG TECHNIQUE IN DRUG USAGE PROCESS [None]
